FAERS Safety Report 7991812-6 (Version None)
Quarter: 2011Q4

REPORT INFORMATION
  Report Type: 
  Country: None (occurrence: None)
  Receive Date: 20111219
  Receipt Date: 20111207
  Transmission Date: 20120403
  Serious: Yes (Other)
  Sender: FDA-Public Use
  Company Number: PHHY2011CH098362

PATIENT
  Age: 66 Year
  Sex: Female
  Weight: 65 kg

DRUGS (1)
  1. CLOZAPINE [Suspect]
     Dosage: 100 MG, TWICE A DAY
     Route: 048
     Dates: start: 20040101

REACTIONS (2)
  - POSTMENOPAUSAL HAEMORRHAGE [None]
  - MUCOSAL ATROPHY [None]
